FAERS Safety Report 8256929-X (Version None)
Quarter: 2012Q2

REPORT INFORMATION
  Report Type: 
  Country: None (occurrence: None)
  Receive Date: 20120403
  Receipt Date: 20120328
  Transmission Date: 20120825
  Serious: No
  Sender: FDA-Public Use
  Company Number: ZA-JNJFOC-20120400355

PATIENT
  Sex: Male

DRUGS (1)
  1. REVELLEX [Suspect]
     Indication: CROHN'S DISEASE
     Route: 042

REACTIONS (3)
  - OROPHARYNGEAL PAIN [None]
  - LYMPHADENOPATHY [None]
  - CANDIDIASIS [None]
